FAERS Safety Report 5115114-0 (Version None)
Quarter: 2006Q3

REPORT INFORMATION
  Report Type: 
  Country: None (occurrence: None)
  Receive Date: 20060922
  Receipt Date: 20060912
  Transmission Date: 20061208
  Serious: Yes (Other)
  Sender: FDA-Public Use
  Company Number: 2006110917

PATIENT
  Age: 58 Year
  Sex: Female
  Weight: 60.3284 kg

DRUGS (2)
  1. ESTRING [Suspect]
     Indication: ATROPHIC VULVOVAGINITIS
     Dates: start: 20060824, end: 20060831
  2. ESTRING [Suspect]
     Indication: DYSPAREUNIA
     Dates: start: 20060824, end: 20060831

REACTIONS (4)
  - ABDOMINAL PAIN LOWER [None]
  - PYREXIA [None]
  - STAPHYLOCOCCAL INFECTION [None]
  - VAGINAL DISCHARGE [None]
